FAERS Safety Report 6173611-3 (Version None)
Quarter: 2009Q2

REPORT INFORMATION
  Report Type: 
  Country: None (occurrence: None)
  Receive Date: 20090429
  Receipt Date: 20090429
  Transmission Date: 20091009
  Serious: Yes (Hospitalization)
  Sender: FDA-Public Use
  Company Number: None

PATIENT
  Age: 41 Year
  Sex: Female
  Weight: 68.0396 kg

DRUGS (1)
  1. REGLAN [Suspect]
     Indication: SUPPRESSED LACTATION
     Dosage: 10MG 4X PO
     Route: 048
     Dates: start: 20090423, end: 20090424

REACTIONS (5)
  - BRUXISM [None]
  - DYSARTHRIA [None]
  - DYSTONIA [None]
  - FACIAL PALSY [None]
  - FEELING ABNORMAL [None]
